FAERS Safety Report 5751840-8 (Version None)
Quarter: 2008Q2

REPORT INFORMATION
  Report Type: 
  Country: None (occurrence: None)
  Receive Date: 20080529
  Receipt Date: 20080429
  Transmission Date: 20081010
  Serious: No
  Sender: FDA-Public Use
  Company Number: US-BAYER-200822592NA

PATIENT
  Age: 48 Year
  Sex: Female
  Weight: 51 kg

DRUGS (4)
  1. MAGNEVIST [Suspect]
     Indication: NUCLEAR MAGNETIC RESONANCE IMAGING BRAIN
     Dosage: TOTAL DAILY DOSE: 10.1 ML
     Route: 042
     Dates: start: 20080429, end: 20080429
  2. SYNTHROID [Concomitant]
  3. ULTRAM [Concomitant]
  4. MEDROL [Concomitant]

REACTIONS (2)
  - PRURITUS [None]
  - URTICARIA [None]
